FAERS Safety Report 6706039-5 (Version None)
Quarter: 2010Q2

REPORT INFORMATION
  Report Type: 
  Country: None (occurrence: None)
  Receive Date: 20100429
  Receipt Date: 20100416
  Transmission Date: 20101027
  Serious: Yes (Hospitalization)
  Sender: FDA-Public Use
  Company Number: 1-22286034

PATIENT
  Age: 37 Year
  Sex: Female
  Weight: 58.9676 kg

DRUGS (1)
  1. SOLODYN [Suspect]
     Indication: ACNE
     Dosage: 135 MG DAILY, ORAL
     Route: 048
     Dates: start: 20100326, end: 20100409

REACTIONS (13)
  - AGITATION [None]
  - ENZYME ABNORMALITY [None]
  - EYE SWELLING [None]
  - LIP SWELLING [None]
  - LOSS OF CONSCIOUSNESS [None]
  - PALPITATIONS [None]
  - PHARYNGEAL HYPOAESTHESIA [None]
  - PHARYNGEAL OEDEMA [None]
  - PRURITUS [None]
  - RASH GENERALISED [None]
  - SENSATION OF FOREIGN BODY [None]
  - TREMOR [None]
  - URTICARIA [None]
